FAERS Safety Report 23694998 (Version 2)
Quarter: 2024Q2

REPORT INFORMATION
  Report Type: Report from Study
  Country: US (occurrence: US)
  Receive Date: 20240402
  Receipt Date: 20240421
  Transmission Date: 20240716
  Serious: Yes (Other)
  Sender: FDA-Public Use
  Company Number: US-JNJFOC-20240369117

PATIENT

DRUGS (1)
  1. SPRAVATO [Suspect]
     Active Substance: ESKETAMINE
     Indication: Depression

REACTIONS (6)
  - Hallucination [Recovered/Resolved]
  - Sinus operation [Unknown]
  - Product taste abnormal [Recovered/Resolved]
  - Nerve block [Unknown]
  - Agitation [Unknown]
  - Sedation [Unknown]

NARRATIVE: CASE EVENT DATE: 20240409
